FAERS Safety Report 4784540-1 (Version None)
Quarter: 2005Q3

REPORT INFORMATION
  Report Type: 
  Country: None (occurrence: None)
  Receive Date: 20050930
  Receipt Date: 20050927
  Transmission Date: 20060218
  Serious: Yes (Other)
  Sender: FDA-Public Use
  Company Number: DE-GLAXOSMITHKLINE-D0047607A

PATIENT
  Age: 33 Year
  Sex: Female

DRUGS (1)
  1. MALARONE [Suspect]
     Route: 048
     Dates: end: 20050801

REACTIONS (1)
  - HEPATIC ENZYME INCREASED [None]
